FAERS Safety Report 9338177 (Version 1)
Quarter: 2013Q2

REPORT INFORMATION
  Report Type: Spontaneous
  Country: US (occurrence: US)
  Receive Date: 20130610
  Receipt Date: 20130610
  Transmission Date: 20140414
  Serious: No
  Sender: FDA-Public Use
  Company Number: US-B.I. PHARMACEUTICALS,INC./RIDGEFIELD-2013-BI-15684BP

PATIENT
  Sex: Male

DRUGS (15)
  1. COMBIVENT [Suspect]
     Indication: CHRONIC OBSTRUCTIVE PULMONARY DISEASE
     Dosage: STRENGTH: 18 MCG/103 MCG; DAILY DOSE: 144 MCG/ 824 MCG
     Route: 055
     Dates: start: 2012, end: 201305
  2. COMBIVENT [Suspect]
     Indication: CHRONIC OBSTRUCTIVE PULMONARY DISEASE
     Dosage: STRENGTH: 20 MCG/100 MCG; DAILY DOSE: 160 MCG/800 MCG
     Route: 055
     Dates: start: 201305
  3. SPIRIVA [Suspect]
     Indication: CHRONIC OBSTRUCTIVE PULMONARY DISEASE
     Dosage: 18 MCG
     Route: 055
     Dates: start: 201206, end: 201209
  4. LEVOTHYROXINE [Concomitant]
     Indication: THYROID DISORDER
     Dosage: 175 MG
     Route: 048
  5. COUMADIN [Concomitant]
     Dosage: 5 MG
     Route: 048
  6. COUMADIN [Concomitant]
     Dosage: 2 MG
     Route: 048
  7. TRICOR [Concomitant]
     Dosage: 145 MG
     Route: 048
  8. TWINLAB MENS ULTRATAB [Concomitant]
     Route: 048
  9. VITAMIN D3 [Concomitant]
     Dosage: 5000 U
     Route: 048
  10. FISH OIL [Concomitant]
     Route: 048
  11. LANSOPRAZOLE [Concomitant]
     Indication: GASTROOESOPHAGEAL REFLUX DISEASE
     Dosage: 30 MG
     Route: 048
  12. LISINOPRIL [Concomitant]
     Dosage: 20 MG
     Route: 048
  13. CINNAMON [Concomitant]
     Route: 048
  14. IRON CHELATE [Concomitant]
     Route: 048
  15. METOPROLOL [Concomitant]
     Dosage: 100 MG
     Route: 048

REACTIONS (5)
  - Atrial fibrillation [Not Recovered/Not Resolved]
  - Hypertension [Recovered/Resolved]
  - Urinary retention [Not Recovered/Not Resolved]
  - Incontinence [Not Recovered/Not Resolved]
  - Anaemia [Not Recovered/Not Resolved]
